FAERS Safety Report 8145061-1 (Version None)
Quarter: 2012Q1

REPORT INFORMATION
  Report Type: 
  Country: None (occurrence: None)
  Receive Date: 20120217
  Receipt Date: 20120206
  Transmission Date: 20120608
  Serious: Yes (Other)
  Sender: FDA-Public Use
  Company Number: PHEH2012US003087

PATIENT
  Sex: Female
  Weight: 68.027 kg

DRUGS (3)
  1. NEORAL [Suspect]
     Indication: HEART TRANSPLANT
     Dosage: 125 MG, BID
     Route: 048
     Dates: start: 19920706
  2. MYCOPHENOLATE MOFETIL (CELLCEPT) [Suspect]
     Indication: CARDIAC DISORDER
     Dosage: 500 MG, BID
     Route: 048
     Dates: start: 19920706
  3. LIPITOR [Suspect]
     Indication: BLOOD CHOLESTEROL INCREASED
     Dosage: DAILY
     Route: 048

REACTIONS (2)
  - BLOOD CHOLESTEROL INCREASED [None]
  - HYPERTENSION [None]
